FAERS Safety Report 10759829 (Version 2)
Quarter: 2015Q3

REPORT INFORMATION
  Report Type: Spontaneous
  Country: US (occurrence: US)
  Receive Date: 20150203
  Receipt Date: 20150702
  Transmission Date: 20151125
  Serious: Yes (Other)
  Sender: FDA-Public Use
  Company Number: US-GLAXOSMITHKLINE CONSUMER HEALTHCARE INC.-US2015013277

PATIENT
  Age: 73 Year
  Sex: Male

DRUGS (2)
  1. ABREVA [Suspect]
     Active Substance: DOCOSANOL
     Dosage: UNK
     Route: 061
  2. ABREVA [Suspect]
     Active Substance: DOCOSANOL
     Indication: ORAL HERPES
     Dosage: UNK
     Route: 061
     Dates: end: 20150130

REACTIONS (3)
  - Feeling drunk [Recovered/Resolved]
  - Disability [Recovered/Resolved]
  - Dizziness [Recovered/Resolved]

NARRATIVE: CASE EVENT DATE: 20150131
